FAERS Safety Report 7981846-X (Version None)
Quarter: 2011Q4

REPORT INFORMATION
  Report Type: 
  Country: None (occurrence: None)
  Receive Date: 20111215
  Receipt Date: 20111205
  Transmission Date: 20120403
  Serious: Yes (Other)
  Sender: FDA-Public Use
  Company Number: DK-PFIZER INC-2011285263

PATIENT
  Age: 58 Year
  Sex: Male

DRUGS (1)
  1. SULFASALAZINE [Suspect]
     Indication: GASTROINTESTINAL INFLAMMATION
     Dosage: UNK
     Dates: start: 20100108, end: 20100903

REACTIONS (2)
  - POLYNEUROPATHY [None]
  - PARAESTHESIA [None]
